FAERS Safety Report 6545930-X (Version None)
Quarter: 2010Q1

REPORT INFORMATION
  Report Type: 
  Country: None (occurrence: None)
  Receive Date: 20100121
  Receipt Date: 20100121
  Transmission Date: 20100710
  Serious: No
  Sender: FDA-Public Use
  Company Number: None

PATIENT
  Age: 56 Year
  Sex: Female

DRUGS (2)
  1. CARBAMAZEPINE [Suspect]
     Indication: PAIN
     Dosage: 200 MG BID PO
     Route: 048
  2. FLUOXETINE [Suspect]
     Indication: DEPRESSION
     Dosage: 20 MG DAILY PO
     Route: 048

REACTIONS (8)
  - CHEST DISCOMFORT [None]
  - DYSPHAGIA [None]
  - FATIGUE [None]
  - INTERSTITIAL GRANULOMATOUS DERMATITIS [None]
  - LETHARGY [None]
  - ORAL DISORDER [None]
  - OROPHARYNGEAL PAIN [None]
  - VISION BLURRED [None]
